FAERS Safety Report 4974842-8 (Version None)
Quarter: 2006Q1

REPORT INFORMATION
  Report Type: 
  Country: None (occurrence: None)
  Receive Date: 20060227
  Receipt Date: 20050420
  Transmission Date: 20060701
  Serious: Yes (Other)
  Sender: FDA-Public Use
  Company Number: 200503500

PATIENT
  Age: 70 Year
  Sex: Male
  Weight: 63.5036 kg

DRUGS (3)
  1. ACULAR [Suspect]
     Dosage: 2 DROP QID EYE
  2. PRED FORTE [Concomitant]
  3. VIGEMOX [Concomitant]

REACTIONS (1)
  - ULCERATIVE KERATITIS [None]
